FAERS Safety Report 6079077-6 (Version None)
Quarter: 2009Q1

REPORT INFORMATION
  Report Type: 
  Country: None (occurrence: None)
  Receive Date: 20090216
  Receipt Date: 20090204
  Transmission Date: 20090719
  Serious: Yes (Hospitalization)
  Sender: FDA-Public Use
  Company Number: PL-WYE-H08095609

PATIENT
  Sex: Female

DRUGS (2)
  1. EFFEXOR XR [Suspect]
     Indication: MAJOR DEPRESSION
     Route: 048
     Dates: start: 20080729, end: 20080810
  2. EFFEXOR XR [Suspect]
     Route: 048
     Dates: start: 20080811, end: 20090110

REACTIONS (1)
  - BILE DUCT STONE [None]
